FAERS Safety Report 9435731 (Version 1)
Quarter: 2013Q3

REPORT INFORMATION
  Report Type: Report from Study
  Country: CA (occurrence: CA)
  Receive Date: 20130801
  Receipt Date: 20130801
  Transmission Date: 20140515
  Serious: Yes (Death)
  Sender: FDA-Public Use
  Company Number: CA-ASTRAZENECA-2013SE58344

PATIENT
  Age: 32477 Day
  Sex: Male

DRUGS (1)
  1. ZOLADEX [Suspect]
     Route: 058
     Dates: end: 20130709

REACTIONS (3)
  - Death [Fatal]
  - Pollakiuria [Not Recovered/Not Resolved]
  - Incontinence [Not Recovered/Not Resolved]
